FAERS Safety Report 9317964 (Version 1)
Quarter: 2013Q2

REPORT INFORMATION
  Report Type: Spontaneous
  Country: US (occurrence: US)
  Receive Date: 20130530
  Receipt Date: 20130530
  Transmission Date: 20140414
  Serious: No
  Sender: FDA-Public Use
  Company Number: US-GLAXOSMITHKLINE-A0998028A

PATIENT
  Sex: Female

DRUGS (18)
  1. VENTOLIN [Suspect]
     Indication: ASTHMA
     Dosage: 2PUFF SIX TIMES PER DAY
     Route: 055
  2. ALBUTEROL NEBULIZER [Concomitant]
  3. KLOR-CON [Concomitant]
  4. ASMANEX [Concomitant]
  5. SPIRIVA [Concomitant]
  6. FORADIL [Concomitant]
  7. SIMVASTATIN [Concomitant]
  8. LISINOPRIL [Concomitant]
  9. COUMADIN [Concomitant]
  10. LASIX [Concomitant]
  11. SINGULAIR [Concomitant]
  12. DIAZEPAM [Concomitant]
  13. DIGOXIN [Concomitant]
  14. TUSSIONEX [Concomitant]
  15. AZILECT [Concomitant]
  16. DOCUSATE [Concomitant]
  17. NASONEX [Concomitant]
  18. SEROQUEL [Concomitant]

REACTIONS (2)
  - Drug ineffective [Unknown]
  - Product quality issue [Unknown]
